FAERS Safety Report 9078854 (Version 1)
Quarter: 2013Q1

REPORT INFORMATION
  Report Type: Spontaneous
  Country: US (occurrence: US)
  Receive Date: 20130215
  Receipt Date: 20130215
  Transmission Date: 20140127
  Serious: Yes (Death, Hospitalization, Other)
  Sender: FDA-Public Use
  Company Number: US-ELI_LILLY_AND_COMPANY-US201302004001

PATIENT
  Sex: Male
  Weight: 147.39 kg

DRUGS (13)
  1. EFFIENT [Suspect]
  2. HUMIRA [Concomitant]
     Indication: PSORIATIC ARTHROPATHY
     Dosage: 40 MG, UNK
     Dates: end: 201209
  3. METHOTREXATE [Concomitant]
  4. LOSARTAN POTASSIUM [Concomitant]
  5. SPIRONOLACTONE [Concomitant]
  6. METFORMIN [Concomitant]
     Indication: DIABETES MELLITUS
  7. JANUVIA [Concomitant]
     Indication: DIABETES MELLITUS
     Dosage: UNK
  8. GLYBURIDE [Concomitant]
     Indication: DIABETES MELLITUS
  9. GABAPENTIN [Concomitant]
     Indication: NEUROPATHY PERIPHERAL
  10. FUROSEMIDE [Concomitant]
     Indication: FLUID RETENTION
  11. FERROUS SULFATE [Concomitant]
  12. ASPIRIN [Concomitant]
  13. CELEXA [Concomitant]
     Indication: DEPRESSION

REACTIONS (11)
  - Cardiac disorder [Fatal]
  - Hepatic cirrhosis [Unknown]
  - Device occlusion [Recovered/Resolved]
  - Device occlusion [Unknown]
  - Coronary artery stenosis [Recovered/Resolved]
  - Pancreatic disorder [Unknown]
  - Chest pain [Unknown]
  - Haemorrhage [Recovered/Resolved]
  - Haemorrhage [Unknown]
  - Portal hypertension [Unknown]
  - Implant site bruising [Recovered/Resolved]
